FAERS Safety Report 10062843 (Version 2)
Quarter: 2014Q3

REPORT INFORMATION
  Report Type: Spontaneous
  Country: US (occurrence: US)
  Receive Date: 20140407
  Receipt Date: 20140821
  Transmission Date: 20150326
  Serious: Yes (Hospitalization)
  Sender: FDA-Public Use
  Company Number: US-BAYER-2014-051412

PATIENT
  Age: 27 Year
  Sex: Female
  Weight: 48.73 kg

DRUGS (13)
  1. ZANAFLEX [Concomitant]
     Active Substance: TIZANIDINE HYDROCHLORIDE
  2. YASMIN [Suspect]
     Active Substance: DROSPIRENONE\ETHINYL ESTRADIOL
     Indication: CONTRACEPTION
     Dosage: UNK
     Route: 048
     Dates: start: 200803, end: 201201
  3. YASMIN [Suspect]
     Active Substance: DROSPIRENONE\ETHINYL ESTRADIOL
     Indication: ACNE
  4. OCELLA [Suspect]
     Active Substance: DROSPIRENONE\ETHINYL ESTRADIOL
     Indication: CONTRACEPTION
     Dosage: UNK
     Route: 048
     Dates: start: 200803, end: 201201
  5. GLUCOSAMINE [GLUCOSAMINE] [Concomitant]
  6. CLOBETASOL [Concomitant]
     Active Substance: CLOBETASOL
     Dosage: 0.05 %, UNK
     Dates: start: 20111031
  7. OMEPRAZOLE. [Concomitant]
     Active Substance: OMEPRAZOLE
  8. ZOLOFT [Concomitant]
     Active Substance: SERTRALINE HYDROCHLORIDE
  9. SERTRALINE [Concomitant]
     Active Substance: SERTRALINE HYDROCHLORIDE
     Indication: ANXIETY
     Dosage: UNK
     Dates: start: 2006
  10. CIMETIDINE [Concomitant]
     Active Substance: CIMETIDINE
     Indication: PRURITUS
     Dosage: UNK
     Dates: start: 2007
  11. OCELLA [Suspect]
     Active Substance: DROSPIRENONE\ETHINYL ESTRADIOL
     Indication: ACNE
  12. IBUPROFEN. [Concomitant]
     Active Substance: IBUPROFEN
  13. TAGAMET [Concomitant]
     Active Substance: CIMETIDINE

REACTIONS (6)
  - Pain [None]
  - Anxiety [None]
  - Pulmonary embolism [None]
  - General physical health deterioration [None]
  - Emotional distress [None]
  - Injury [None]

NARRATIVE: CASE EVENT DATE: 20120107
